FAERS Safety Report 9221744 (Version 1)
Quarter: 2013Q1

REPORT INFORMATION
  Report Type: Spontaneous
  Country: US (occurrence: None)
  Receive Date: 20120907
  Receipt Date: 20120907
  Transmission Date: 20140127
  Serious: Yes (Hospitalization, Other)
  Sender: FDA-Public Use
  Company Number: TH-2012-00540

PATIENT
  Age: 48 Year
  Sex: Male
  Weight: 102 kg

DRUGS (1)
  1. EGRIFTA [Suspect]
     Indication: LIPODYSTROPHY ACQUIRED
     Dosage: 1 IN 1 D
     Route: 058
     Dates: start: 2011, end: 201205

REACTIONS (4)
  - Myocardial infarction [None]
  - Coronary artery occlusion [None]
  - Bronchitis [None]
  - Pneumonia [None]
